FAERS Safety Report 7460265-9 (Version None)
Quarter: 2011Q2

REPORT INFORMATION
  Report Type: 
  Country: None (occurrence: None)
  Receive Date: 20110427
  Receipt Date: 20110415
  Transmission Date: 20111010
  Serious: Yes (Hospitalization)
  Sender: FDA-Public Use
  Company Number: CRC-11-096

PATIENT
  Age: 89 Year
  Sex: Female
  Weight: 44.9061 kg

DRUGS (10)
  1. CITALOPRAM HYDROBROMIDE [Concomitant]
  2. WARFARIN SODIUM [Concomitant]
  3. LASIX [Concomitant]
  4. VITAMIN D [Concomitant]
  5. LORAZEPAM [Concomitant]
  6. CARVEDILOL [Concomitant]
  7. GABAPENTIN [Concomitant]
  8. RIVASTIGMINE TARTRATE [Suspect]
     Indication: DEMENTIA
     Dosage: 1 TAB, ONCE, ORALLY
     Route: 048
     Dates: start: 20110324
  9. SPIRONOLACTONE [Concomitant]
  10. POTASSIUM [Concomitant]

REACTIONS (4)
  - PRODUCT FORMULATION ISSUE [None]
  - DYSPNOEA [None]
  - DYSSTASIA [None]
  - VOMITING [None]
